FAERS Safety Report 9463874 (Version 2)
Quarter: 2013Q3

REPORT INFORMATION
  Report Type: Spontaneous
  Country: JP (occurrence: JP)
  Receive Date: 20130819
  Receipt Date: 20130913
  Transmission Date: 20140515
  Serious: Yes (Other)
  Sender: FDA-Public Use
  Company Number: JP-JNJFOC-20130806024

PATIENT
  Age: 94 Year
  Sex: Female

DRUGS (7)
  1. REMINYL [Suspect]
     Indication: DEMENTIA
     Route: 048
     Dates: start: 20130523
  2. REMINYL [Suspect]
     Indication: DEMENTIA
     Route: 048
     Dates: start: 20130502, end: 20130522
  3. CONIEL [Concomitant]
     Route: 048
  4. SINGULAIR [Concomitant]
     Route: 048
  5. LASIX [Concomitant]
     Route: 065
  6. THYRADIN S [Concomitant]
     Route: 048
  7. HOKUNALIN [Concomitant]
     Route: 065

REACTIONS (1)
  - Gout [Unknown]
